FAERS Safety Report 8153890-3 (Version None)
Quarter: 2012Q1

REPORT INFORMATION
  Report Type: 
  Country: None (occurrence: None)
  Receive Date: 20120221
  Receipt Date: 20120209
  Transmission Date: 20120608
  Serious: Yes (Hospitalization)
  Sender: FDA-Public Use
  Company Number: FR-ELI_LILLY_AND_COMPANY-FR201201002072

PATIENT
  Age: 74 Year
  Sex: Female

DRUGS (5)
  1. PRAVASTATIN [Concomitant]
     Dosage: UNK
     Dates: start: 19900101
  2. ASPIRIN [Concomitant]
     Dosage: UNK
     Dates: start: 19900101
  3. ACETAMINOPHEN [Concomitant]
     Dosage: UNK
     Dates: start: 20000101
  4. BISOPROLOL FUMARATE [Concomitant]
     Dosage: UNK
     Dates: start: 20110301
  5. FORTEO [Suspect]
     Indication: OSTEOPOROSIS
     Dosage: 20 UG, QD
     Route: 058
     Dates: start: 20120106, end: 20120110

REACTIONS (2)
  - EPISTAXIS [None]
  - BACK PAIN [None]
